FAERS Safety Report 23611784 (Version 1)
Quarter: 2024Q1

REPORT INFORMATION
  Report Type: Spontaneous
  Country: JP (occurrence: JP)
  Receive Date: 20240308
  Receipt Date: 20240308
  Transmission Date: 20240409
  Serious: Yes (Hospitalization)
  Sender: FDA-Public Use
  Company Number: JP-MSD-M2024-08663

PATIENT
  Age: 51 Year
  Sex: Female

DRUGS (9)
  1. LAGEVRIO [Suspect]
     Active Substance: MOLNUPIRAVIR
     Indication: COVID-19 treatment
     Dosage: 800 MILLIGRAM, BID
     Route: 048
     Dates: start: 20240225, end: 20240229
  2. ERYTHROCIN [ERYTHROMYCIN ETHYLSUCCINATE] [Concomitant]
     Dosage: UNK
     Route: 065
  3. MONTELUKAST SODIUM [Concomitant]
     Active Substance: MONTELUKAST SODIUM
     Dosage: UNK
     Route: 065
  4. TULOBUTEROL [Concomitant]
     Active Substance: TULOBUTEROL
     Dosage: UNK
     Route: 065
  5. RISEDRONATE SODIUM [Concomitant]
     Active Substance: RISEDRONATE SODIUM
     Dosage: UNK
     Route: 065
  6. HERBALS [Concomitant]
     Active Substance: HERBALS
     Dosage: UNK
     Route: 048
  7. MIYA-BM [Concomitant]
     Active Substance: CLOSTRIDIUM BUTYRICUM SPORES STRAIN M-55
     Dosage: UNK
     Route: 048
  8. FLUTICASONE PROPIONATE [Concomitant]
     Active Substance: FLUTICASONE PROPIONATE
     Dosage: UNK
     Route: 065
  9. BUSERELIN [BUSERELIN ACETATE] [Concomitant]
     Dosage: UNK
     Route: 045

REACTIONS (1)
  - Malaise [Recovered/Resolved]

NARRATIVE: CASE EVENT DATE: 20240227
